FAERS Safety Report 5452151-0 (Version None)
Quarter: 2007Q3

REPORT INFORMATION
  Report Type: 
  Country: None (occurrence: None)
  Receive Date: 20070912
  Receipt Date: 20070816
  Transmission Date: 20080115
  Serious: Yes (Hospitalization, Other)
  Sender: FDA-Public Use
  Company Number: 2007RL000369

PATIENT
  Age: 65 Year
  Sex: Female
  Weight: 45.3597 kg

DRUGS (8)
  1. RYTHMOL [Suspect]
     Indication: DRUG USE FOR UNKNOWN INDICATION
     Dosage: ;PO
     Route: 048
     Dates: start: 20070401, end: 20070101
  2. PROCRIT [Suspect]
     Indication: ANAEMIA OF MALIGNANT DISEASE
     Dosage: 20000 IU;QW;SC; 20000 IU;BIW;SC; 40000 IU;X1;SC
     Route: 058
     Dates: start: 20070401, end: 20070101
  3. PROCRIT [Suspect]
     Indication: ANAEMIA OF MALIGNANT DISEASE
     Dosage: 20000 IU;QW;SC; 20000 IU;BIW;SC; 40000 IU;X1;SC
     Route: 058
     Dates: start: 19910101, end: 20070601
  4. PROCRIT [Suspect]
     Indication: ANAEMIA OF MALIGNANT DISEASE
     Dosage: 20000 IU;QW;SC; 20000 IU;BIW;SC; 40000 IU;X1;SC
     Route: 058
     Dates: start: 20070601
  5. PROCRIT [Suspect]
     Indication: ANAEMIA OF MALIGNANT DISEASE
     Dosage: 20000 IU;QW;SC; 20000 IU;BIW;SC; 40000 IU;X1;SC
     Route: 058
     Dates: start: 20070622
  6. TOPROL-XL [Suspect]
     Indication: DRUG USE FOR UNKNOWN INDICATION
     Dosage: ; PO;
     Route: 048
     Dates: start: 20070401
  7. ARANESP [Suspect]
     Indication: MYELODYSPLASTIC SYNDROME
  8. INDERAL [Concomitant]

REACTIONS (14)
  - BLOOD PRESSURE INCREASED [None]
  - BLOOD SODIUM DECREASED [None]
  - BLOOD SODIUM INCREASED [None]
  - CATHETER SITE RELATED REACTION [None]
  - ERYTHEMA [None]
  - FLUID RETENTION [None]
  - HAEMATOCRIT DECREASED [None]
  - HAEMATOMA [None]
  - HEADACHE [None]
  - INCORRECT DOSE ADMINISTERED [None]
  - OEDEMA PERIPHERAL [None]
  - PRURITUS [None]
  - SWELLING [None]
  - TREATMENT NONCOMPLIANCE [None]
